FAERS Safety Report 8634593 (Version 3)
Quarter: 2013Q1

REPORT INFORMATION
  Report Type: Spontaneous
  Country: US (occurrence: US)
  Receive Date: 20120626
  Receipt Date: 20130102
  Transmission Date: 20140127
  Serious: Yes (Hospitalization, Other)
  Sender: FDA-Public Use
  Company Number: US-PFIZER INC-2012148457

PATIENT
  Sex: Female

DRUGS (2)
  1. NEURONTIN [Suspect]
     Dosage: 600 MG, UNK
  2. RELPAX [Suspect]
     Dosage: 40 MG, UNK

REACTIONS (4)
  - Apparent death [Unknown]
  - Coma [Unknown]
  - Burns third degree [Unknown]
  - Brain injury [Unknown]
